FAERS Safety Report 10192289 (Version 2)
Quarter: 2014Q2

REPORT INFORMATION
  Report Type: Spontaneous
  Country: US (occurrence: US)
  Receive Date: 20140523
  Receipt Date: 20140523
  Transmission Date: 20141212
  Serious: Yes (Other)
  Sender: FDA-Public Use
  Company Number: US-AMGEN INC.-USASP2014033130

PATIENT
  Age: 69 Year
  Sex: Female
  Weight: 82.54 kg

DRUGS (2)
  1. PROLIA [Suspect]
     Indication: OSTEOPOROSIS
     Dosage: 60 MG, Q6MO
     Route: 058
     Dates: start: 20131028
  2. PROLIA [Suspect]
     Dosage: 60 MG, Q6MO
     Route: 058
     Dates: start: 20140205

REACTIONS (3)
  - Exostosis of jaw [Not Recovered/Not Resolved]
  - Tooth extraction [Unknown]
  - Procedural pain [Unknown]
